FAERS Safety Report 5794060-3 (Version None)
Quarter: 2008Q2

REPORT INFORMATION
  Report Type: 
  Country: None (occurrence: None)
  Receive Date: 20080627
  Receipt Date: 20080529
  Transmission Date: 20081010
  Serious: Yes (Death, Other)
  Sender: FDA-Public Use
  Company Number: AU-PFIZER INC-2008039049

PATIENT
  Sex: Male

DRUGS (5)
  1. SUTENT [Suspect]
     Indication: RENAL CELL CARCINOMA
     Route: 048
     Dates: start: 20060606, end: 20080306
  2. FUROSEMIDE [Concomitant]
     Route: 048
  3. SLOW-K [Concomitant]
     Route: 048
  4. MELOXICAM [Concomitant]
     Route: 048
  5. AVAPRO [Concomitant]
     Route: 048

REACTIONS (4)
  - CHEST DISCOMFORT [None]
  - DEATH [None]
  - FATIGUE [None]
  - PANCREATITIS [None]
